FAERS Safety Report 6589579-1 (Version None)
Quarter: 2010Q1

REPORT INFORMATION
  Report Type: 
  Country: None (occurrence: None)
  Receive Date: 20100212
  Receipt Date: 20100122
  Transmission Date: 20100710
  Serious: Yes (Death)
  Sender: FDA-Public Use
  Company Number: 2010000307

PATIENT
  Age: 69 Year
  Sex: Female
  Weight: 63.3 kg

DRUGS (29)
  1. ERLOTINIB HYDROCHLORIDE [Suspect]
     Indication: NON-SMALL CELL LUNG CANCER
     Dosage: (50 MG,QD), ORAL
     Route: 048
     Dates: start: 20090716, end: 20100106
  2. CP-751, 871/PLACEBO [Suspect]
     Indication: NON-SMALL CELL LUNG CANCER
     Dosage: (1266 MG, DAYS 1 AND 2 EVERY 3 WEEKS),INTRAVENOUS
     Route: 042
     Dates: start: 20090716
  3. CIPROFLOXACIN [Concomitant]
  4. COLACE(DOCUSATE SODIUM) [Concomitant]
  5. PANTOPRAZOLE SODIUM [Concomitant]
  6. PREMARIN [Concomitant]
  7. LIPITOR [Concomitant]
  8. CALCIUM(CALCIUM) [Concomitant]
  9. RIVASA [Concomitant]
  10. VITAMIN D [Concomitant]
  11. TYLENOL [Concomitant]
  12. METAMUCIL-2 [Concomitant]
  13. LOPERAMIDE HYDROCHLORIDE [Concomitant]
  14. ZANTAC 150 [Concomitant]
  15. ARTIFICIAL TEARS (ARTIFICIAL TEARS) [Concomitant]
  16. MAGIC MOUTHWASH [Concomitant]
  17. ZINC (ZINC) [Concomitant]
  18. NYADERM (NYSTATIN) [Concomitant]
  19. HYDROCORTONE [Concomitant]
  20. DESONIDE [Concomitant]
  21. HYDROCORTISONE ACETATE (HYDROCORTISONE ACETATE) [Concomitant]
  22. HYDROCORTONE [Concomitant]
  23. NYSTATIN [Concomitant]
  24. INFLUENZA VIRUS VACCINE MONOVALENT( INFLUENZA VIRUS VACCINE MONOVALENT [Concomitant]
  25. CLAVULIN (CLAVULIN) [Concomitant]
  26. PEDIALYTE (PEDIALYTE) [Concomitant]
  27. LOVENOX [Concomitant]
  28. MESALAMINE [Concomitant]
  29. LYRICA [Concomitant]

REACTIONS (2)
  - ASTHENIA [None]
  - NAUSEA [None]
